FAERS Safety Report 16901727 (Version 2)
Quarter: 2019Q4

REPORT INFORMATION
  Report Type: Spontaneous
  Country: JP (occurrence: JP)
  Receive Date: 20191010
  Receipt Date: 20191215
  Transmission Date: 20200122
  Serious: Yes (Other)
  Sender: FDA-Public Use
  Company Number: JP-B.I. PHARMACEUTICALS,INC./RIDGEFIELD-2019-BI-105314

PATIENT
  Age: 67 Year
  Sex: Male

DRUGS (5)
  1. INSULIN [Concomitant]
     Active Substance: INSULIN NOS
     Indication: PRODUCT USED FOR UNKNOWN INDICATION
     Route: 065
  2. PRAZAXA [Suspect]
     Active Substance: DABIGATRAN ETEXILATE MESYLATE
     Indication: CEREBRAL INFARCTION
     Route: 048
  3. SALAZOSULFAPYRIDINE [Suspect]
     Active Substance: SULFASALAZINE
     Indication: RHEUMATIC DISORDER
     Dosage: ADMINISTERED AT A DOSE OF 500 MG/DAY
     Route: 048
  4. SALAZOSULFAPYRIDINE [Suspect]
     Active Substance: SULFASALAZINE
     Indication: RHEUMATIC DISORDER
     Dosage: AFTER 7 DAYS (I.E., ON DAY 14) TO 1,000 MG/DAY.
     Route: 048
  5. LEVETIRACETAM. [Concomitant]
     Active Substance: LEVETIRACETAM
     Indication: SEIZURE PROPHYLAXIS
     Dosage: AT A DOSE OF 1,000 MG/DAY
     Route: 065

REACTIONS (14)
  - Pyrexia [Unknown]
  - Erythema [Unknown]
  - Respiratory disorder [Unknown]
  - Pericardial effusion [Recovered/Resolved]
  - Drug reaction with eosinophilia and systemic symptoms [Unknown]
  - Face oedema [Unknown]
  - Malaise [Unknown]
  - Gastrointestinal inflammation [Recovering/Resolving]
  - Hyponatraemia [Recovered/Resolved]
  - Diarrhoea [Unknown]
  - Interstitial lung disease [Unknown]
  - Inappropriate antidiuretic hormone secretion [Unknown]
  - Rash erythematous [Unknown]
  - Stomatitis [Unknown]
